FAERS Safety Report 4588397-3 (Version None)
Quarter: 2005Q1

REPORT INFORMATION
  Report Type: 
  Country: None (occurrence: None)
  Receive Date: 20050222
  Receipt Date: 20040309
  Transmission Date: 20050727
  Serious: No
  Sender: FDA-Public Use
  Company Number: US-BRISTOL-MYERS SQUIBB COMPANY-12530069

PATIENT
  Age: 44 Year
  Sex: Female
  Weight: 77 kg

DRUGS (3)
  1. BICNU [Suspect]
     Dates: start: 20040309, end: 20040309
  2. ACCUPRIL [Concomitant]
  3. LOPRESSOR [Concomitant]

REACTIONS (1)
  - ACCIDENTAL EXPOSURE [None]
